FAERS Safety Report 23678084 (Version 1)
Quarter: 2024Q1

REPORT INFORMATION
  Report Type: Spontaneous
  Country: CN (occurrence: CN)
  Receive Date: 20240327
  Receipt Date: 20240327
  Transmission Date: 20240410
  Serious: Yes (Hospitalization, Other)
  Sender: FDA-Public Use
  Company Number: CN-PFIZER INC-PV202400040229

PATIENT
  Age: 48 Year
  Sex: Female
  Weight: 75.8 kg

DRUGS (3)
  1. EPIRUBICIN [Suspect]
     Active Substance: EPIRUBICIN
     Indication: Invasive breast carcinoma
     Dosage: 160 MG, 1X/DAY
     Route: 041
     Dates: start: 20240224, end: 20240224
  2. CYCLOPHOSPHAMIDE [Suspect]
     Active Substance: CYCLOPHOSPHAMIDE
     Indication: Invasive breast carcinoma
     Dosage: 0.96 G, 1X/DAY
     Route: 041
     Dates: start: 20240224, end: 20240224
  3. SODIUM CHLORIDE [Concomitant]
     Active Substance: SODIUM CHLORIDE
     Indication: Invasive breast carcinoma
     Dosage: 100 ML, 1X/DAY
     Route: 041
     Dates: start: 20240224, end: 20240224

REACTIONS (1)
  - Hepatic function abnormal [Recovering/Resolving]

NARRATIVE: CASE EVENT DATE: 20240314
